FAERS Safety Report 7210768-7 (Version None)
Quarter: 2011Q1

REPORT INFORMATION
  Report Type: 
  Country: None (occurrence: None)
  Receive Date: 20110105
  Receipt Date: 20110103
  Transmission Date: 20110831
  Serious: Yes (Other)
  Sender: FDA-Public Use
  Company Number: US-PFIZER INC-US-WYE-H17042210

PATIENT
  Sex: Female
  Weight: 117 kg

DRUGS (19)
  1. ESOMEPRAZOLE [Concomitant]
     Route: 048
  2. DIFLUCAN [Concomitant]
     Route: 048
  3. SINGULAIR [Concomitant]
     Route: 048
  4. ABILIFY [Concomitant]
     Route: 048
  5. BUSPAR [Concomitant]
     Route: 065
  6. LITHIUM [Concomitant]
     Route: 065
  7. ATIVAN [Concomitant]
     Route: 048
  8. SEROQUEL [Suspect]
     Route: 065
  9. ATROVENT [Concomitant]
     Route: 065
  10. NEURONTIN [Suspect]
     Dosage: UNK
     Route: 048
     Dates: start: 20100101
  11. FLOVENT [Concomitant]
     Route: 065
  12. LEVOTHYROXINE [Concomitant]
     Route: 048
  13. NYSTATIN [Concomitant]
     Route: 048
  14. NEURONTIN [Suspect]
     Dosage: 300 MG, 2X/DAY
     Route: 048
  15. TRIAMCINOLONE [Concomitant]
     Route: 048
  16. EFFEXOR XR [Suspect]
     Indication: DEPRESSION
     Dosage: 225 MG, 1X/DAY
     Route: 048
  17. NEURONTIN [Suspect]
     Indication: NEUROPATHY PERIPHERAL
     Dosage: 2400 MG, 1X/DAY
     Route: 048
     Dates: start: 20090101
  18. NEURONTIN [Suspect]
     Indication: SCIATICA
     Dosage: 18000 MG, 1X/DAY
     Route: 048
  19. LACTOBACILLUS ACIDOPHILUS [Concomitant]
     Route: 048

REACTIONS (11)
  - PARANOIA [None]
  - FEAR [None]
  - TACHYPHRENIA [None]
  - WHITE BLOOD CELL COUNT INCREASED [None]
  - INTENTIONAL SELF-INJURY [None]
  - SENSORY DISTURBANCE [None]
  - MALAISE [None]
  - GLUCOSE TOLERANCE IMPAIRED [None]
  - ANXIETY [None]
  - WEIGHT INCREASED [None]
  - EMOTIONAL DISORDER [None]
